FAERS Safety Report 4872124-6 (Version None)
Quarter: 2005Q4

REPORT INFORMATION
  Report Type: 
  Country: None (occurrence: None)
  Receive Date: 20051230
  Receipt Date: 20051220
  Transmission Date: 20060501
  Serious: Yes (Death)
  Sender: FDA-Public Use
  Company Number: 2005171801

PATIENT
  Age: 8 Year

DRUGS (1)
  1. DIFLUCAN [Suspect]
     Indication: ILL-DEFINED DISORDER
     Dosage: (10 MG)

REACTIONS (2)
  - AZOTAEMIA [None]
  - PANCYTOPENIA [None]
